FAERS Safety Report 6197801-9 (Version None)
Quarter: 2009Q2

REPORT INFORMATION
  Report Type: 
  Country: None (occurrence: None)
  Receive Date: 20090521
  Receipt Date: 20090520
  Transmission Date: 20091009
  Serious: Yes (Life-Threatening, Other)
  Sender: FDA-Public Use
  Company Number: DE-PFIZER INC-2009192333

PATIENT
  Age: 69 Year

DRUGS (1)
  1. AZITHROMYCIN [Suspect]
     Indication: BRONCHITIS BACTERIAL
     Dosage: 500 MG, 1X/DAY
     Route: 048
     Dates: start: 20090305

REACTIONS (5)
  - ANURIA [None]
  - COAGULOPATHY [None]
  - HEPATIC FAILURE [None]
  - RENAL FAILURE [None]
  - THROMBOCYTOPENIA [None]
